FAERS Safety Report 8198301-7 (Version None)
Quarter: 2012Q1

REPORT INFORMATION
  Report Type: 
  Country: None (occurrence: None)
  Receive Date: 20120309
  Receipt Date: 20120301
  Transmission Date: 20120608
  Serious: Yes (Hospitalization)
  Sender: FDA-Public Use
  Company Number: US-MERCK-1102USA01700

PATIENT
  Age: 63 Year
  Sex: Female
  Weight: 82 kg

DRUGS (8)
  1. FOSAMAX [Suspect]
     Route: 065
     Dates: end: 20010417
  2. CELEBREX [Concomitant]
     Route: 048
     Dates: start: 19950101
  3. VITAMIN E [Concomitant]
     Route: 048
  4. FOSAMAX [Suspect]
     Indication: OSTEOPOROSIS
     Route: 048
     Dates: start: 19960101, end: 20080101
  5. ZANTAC [Concomitant]
     Route: 065
  6. LISINOPRIL [Concomitant]
     Route: 048
     Dates: start: 19900101
  7. FOSAMAX PLUS D [Suspect]
     Indication: OSTEOPOROSIS
     Route: 048
     Dates: start: 20071217
  8. LIPITOR [Concomitant]
     Route: 065

REACTIONS (62)
  - HAEMORRHAGIC ANAEMIA [None]
  - ENTEROCOLITIS INFECTIOUS [None]
  - ABDOMINAL PAIN [None]
  - BLOOD PRESSURE INCREASED [None]
  - POOR QUALITY SLEEP [None]
  - WEIGHT LOSS POOR [None]
  - FOOT DEFORMITY [None]
  - BONE LOSS [None]
  - GASTROENTERITIS [None]
  - PROCEDURAL HYPOTENSION [None]
  - ABDOMINAL PAIN LOWER [None]
  - EAR DISORDER [None]
  - DIASTOLIC DYSFUNCTION [None]
  - SINUS HEADACHE [None]
  - RENAL FAILURE [None]
  - VISUAL IMPAIRMENT [None]
  - VULVOVAGINAL DRYNESS [None]
  - MYALGIA [None]
  - OBESITY [None]
  - BREAST PAIN [None]
  - ANAEMIA POSTOPERATIVE [None]
  - TYPE 2 DIABETES MELLITUS [None]
  - NAUSEA [None]
  - DYSPAREUNIA [None]
  - DIARRHOEA [None]
  - RESPIRATORY TRACT CONGESTION [None]
  - GAIT DISTURBANCE [None]
  - IRRITABLE BOWEL SYNDROME [None]
  - OEDEMA PERIPHERAL [None]
  - AORTIC VALVE INCOMPETENCE [None]
  - FOOD POISONING [None]
  - FALL [None]
  - BREAST DISORDER [None]
  - FEMUR FRACTURE [None]
  - COLONIC POLYP [None]
  - POSTOPERATIVE FEVER [None]
  - CONSTIPATION [None]
  - CATARACT [None]
  - DYSURIA [None]
  - JOINT EFFUSION [None]
  - EAR DISCOMFORT [None]
  - MELAENA [None]
  - PRODUCTIVE COUGH [None]
  - ARTHRALGIA [None]
  - FATIGUE [None]
  - EXOSTOSIS [None]
  - OSTEOARTHRITIS [None]
  - OCCULT BLOOD POSITIVE [None]
  - DRUG INEFFECTIVE [None]
  - HERPES ZOSTER [None]
  - NASAL CONGESTION [None]
  - PAIN IN EXTREMITY [None]
  - GLUCOSE TOLERANCE IMPAIRED [None]
  - GLAUCOMA [None]
  - FOOT FRACTURE [None]
  - CHILLS [None]
  - VOMITING [None]
  - DIVERTICULITIS [None]
  - CONTUSION [None]
  - TENDONITIS [None]
  - TOOTH DISORDER [None]
  - MITRAL VALVE INCOMPETENCE [None]
